FAERS Safety Report 14685902 (Version 1)
Quarter: 2018Q1

REPORT INFORMATION
  Report Type: Spontaneous
  Country: US (occurrence: US)
  Receive Date: 20180326
  Receipt Date: 20180326
  Transmission Date: 20180509
  Serious: Yes (Other)
  Sender: FDA-Public Use
  Company Number: None

PATIENT
  Age: 63 Year
  Sex: Female
  Weight: 101.34 kg

DRUGS (5)
  1. LEVOTHYROXINE 175 MCG TABLET ONCE DAILY [Concomitant]
     Dates: start: 20170811
  2. AMLODIPINE 5 MG TABLET ONCE DAILY [Concomitant]
     Dates: start: 20170802
  3. HARVONI 90 MG-400 MG TABLET ONCE DAILY [Concomitant]
     Dates: start: 20170815
  4. TRIAMTERENE 37.5 MG-HYDROCHLOROTHIAZIDE 25 MG TABLET ONCE DAILY [Concomitant]
     Dates: start: 20170802
  5. ATORVASTATIN CALCIUM. [Suspect]
     Active Substance: ATORVASTATIN CALCIUM
     Indication: CARDIOVASCULAR DISORDER
     Route: 048
     Dates: start: 20170810, end: 20170927

REACTIONS (1)
  - Hypoaesthesia [None]

NARRATIVE: CASE EVENT DATE: 20170927
